FAERS Safety Report 12577500 (Version 4)
Quarter: 2017Q1

REPORT INFORMATION
  Report Type: Report from Study
  Country: US (occurrence: US)
  Receive Date: 20160720
  Receipt Date: 20170127
  Transmission Date: 20170428
  Serious: Yes (Hospitalization, Other)
  Sender: FDA-Public Use
  Company Number: US-ASTRAZENECA-2016SE49613

PATIENT
  Age: 47 Year
  Sex: Male
  Weight: 70.8 kg

DRUGS (22)
  1. SYMBICORT [Suspect]
     Active Substance: BUDESONIDE\FORMOTEROL FUMARATE DIHYDRATE
     Indication: CHRONIC OBSTRUCTIVE PULMONARY DISEASE
     Dosage: 160/4.5 MCG, TWO PUFFS TWICE A DAY
     Route: 055
     Dates: start: 2014
  2. SYMBICORT [Suspect]
     Active Substance: BUDESONIDE\FORMOTEROL FUMARATE DIHYDRATE
     Indication: SEASONAL ALLERGY
     Dosage: 160/4.5 MCG, TWO PUFFS TWICE A DAY
     Route: 055
     Dates: start: 2014
  3. ALBUTEROL VIA NEBULIZER [Concomitant]
     Route: 055
  4. SINGULAIR [Concomitant]
     Active Substance: MONTELUKAST SODIUM
     Indication: HEADACHE
     Dosage: DAILY
     Route: 048
  5. SYMBICORT [Suspect]
     Active Substance: BUDESONIDE\FORMOTEROL FUMARATE DIHYDRATE
     Indication: BRONCHITIS
     Dosage: 160/4.5 MCG, TWO PUFFS TWICE A DAY
     Route: 055
     Dates: start: 2014
  6. SYMBICORT [Suspect]
     Active Substance: BUDESONIDE\FORMOTEROL FUMARATE DIHYDRATE
     Indication: BRONCHITIS
     Dosage: 4 PUFFS IN THE MORNING, 4 PUFFS AT NIGHT AS NEEDED.
     Route: 055
     Dates: start: 201608
  7. UNKNOWN MEDICATION [Concomitant]
     Active Substance: UNSPECIFIED INGREDIENT
     Indication: BLOOD PRESSURE ABNORMAL
  8. SYMBICORT [Suspect]
     Active Substance: BUDESONIDE\FORMOTEROL FUMARATE DIHYDRATE
     Indication: SENSITIVITY TO WEATHER CHANGE
     Dosage: 4 PUFFS IN THE MORNING, 4 PUFFS AT NIGHT AS NEEDED.
     Route: 055
     Dates: start: 201608
  9. PRILOSEC [Suspect]
     Active Substance: OMEPRAZOLE MAGNESIUM
     Indication: GASTRIC DISORDER
     Route: 048
  10. RETINAL [Concomitant]
     Indication: MUSCLE SPASMS
     Dates: end: 201601
  11. SYMBICORT [Suspect]
     Active Substance: BUDESONIDE\FORMOTEROL FUMARATE DIHYDRATE
     Indication: EMPHYSEMA
     Dosage: 160/4.5 MCG, TWO PUFFS TWICE A DAY
     Route: 055
     Dates: start: 2014
  12. SYMBICORT [Suspect]
     Active Substance: BUDESONIDE\FORMOTEROL FUMARATE DIHYDRATE
     Indication: CHRONIC OBSTRUCTIVE PULMONARY DISEASE
     Dosage: 4 PUFFS IN THE MORNING, 4 PUFFS AT NIGHT AS NEEDED.
     Route: 055
     Dates: start: 201608
  13. MAGNESIUM OTC [Concomitant]
     Indication: MUSCLE SPASMS
  14. ONDANSETRON [Concomitant]
     Active Substance: ONDANSETRON
     Indication: GASTRIC DISORDER
     Route: 048
     Dates: start: 20160531
  15. SYMBICORT [Suspect]
     Active Substance: BUDESONIDE\FORMOTEROL FUMARATE DIHYDRATE
     Indication: SEASONAL ALLERGY
     Dosage: 4 PUFFS IN THE MORNING, 4 PUFFS AT NIGHT AS NEEDED.
     Route: 055
     Dates: start: 201608
  16. RETINAL [Concomitant]
     Indication: JOINT STIFFNESS
     Dates: end: 201601
  17. SYMBICORT [Suspect]
     Active Substance: BUDESONIDE\FORMOTEROL FUMARATE DIHYDRATE
     Indication: SENSITIVITY TO WEATHER CHANGE
     Dosage: 160/4.5 MCG, TWO PUFFS TWICE A DAY
     Route: 055
     Dates: start: 2014
  18. SINGULAIR [Concomitant]
     Active Substance: MONTELUKAST SODIUM
     Indication: COUGH
     Dosage: DAILY
     Route: 048
  19. PREDNISONE. [Concomitant]
     Active Substance: PREDNISONE
     Indication: LUNG DISORDER
  20. VENTOLIN [Concomitant]
     Active Substance: ALBUTEROL SULFATE
     Indication: LUNG DISORDER
     Route: 055
  21. SYMBICORT [Suspect]
     Active Substance: BUDESONIDE\FORMOTEROL FUMARATE DIHYDRATE
     Indication: EMPHYSEMA
     Dosage: 4 PUFFS IN THE MORNING, 4 PUFFS AT NIGHT AS NEEDED.
     Route: 055
     Dates: start: 201608
  22. UNKNOWN MEDICATION [Concomitant]
     Active Substance: UNSPECIFIED INGREDIENT
     Indication: GASTRIC DISORDER

REACTIONS (21)
  - Oxygen saturation decreased [Unknown]
  - Dyspnoea [Unknown]
  - Red blood cell count decreased [Unknown]
  - Back pain [Unknown]
  - Asthenia [Unknown]
  - Drug ineffective [Unknown]
  - Road traffic accident [Unknown]
  - Joint stiffness [Unknown]
  - Rib fracture [Not Recovered/Not Resolved]
  - Drug dose omission [Unknown]
  - Abdominal discomfort [Unknown]
  - Cough [Unknown]
  - Abdominal pain upper [Unknown]
  - Hepatitis C [Unknown]
  - Pneumonia [Unknown]
  - Headache [Unknown]
  - Intentional product misuse [Unknown]
  - Wheezing [Unknown]
  - Viral infection [Unknown]
  - Vomiting [Unknown]
  - Pain [Unknown]

NARRATIVE: CASE EVENT DATE: 2012
